FAERS Safety Report 12242069 (Version 1)
Quarter: 2016Q2

REPORT INFORMATION
  Report Type: Spontaneous
  Country: DK (occurrence: DK)
  Receive Date: 20160406
  Receipt Date: 20160406
  Transmission Date: 20160815
  Serious: Yes (Other)
  Sender: FDA-Public Use
  Company Number: DK-BRISTOL-MYERS SQUIBB COMPANY-20829818

PATIENT
  Age: 53 Year
  Sex: Male

DRUGS (1)
  1. ABILIFY [Suspect]
     Active Substance: ARIPIPRAZOLE
     Indication: SCHIZOAFFECTIVE DISORDER DEPRESSIVE TYPE
     Dosage: UNK
     Route: 065
     Dates: start: 20070614, end: 20090818

REACTIONS (3)
  - Parkinson^s disease [Unknown]
  - Dyskinesia [Unknown]
  - Psoriasis [Unknown]

NARRATIVE: CASE EVENT DATE: 20070614
